FAERS Safety Report 19889368 (Version 1)
Quarter: 2021Q3

REPORT INFORMATION
  Report Type: Spontaneous
  Country: US (occurrence: US)
  Receive Date: 20210928
  Receipt Date: 20210928
  Transmission Date: 20211014
  Serious: Yes (Hospitalization)
  Sender: FDA-Public Use
  Company Number: None

PATIENT
  Age: 67 Year
  Sex: Male

DRUGS (2)
  1. FENTANYL [FENTANYL CITRATE] (20MCG/ML/NACL 0.9% INJ,BAG,250ML) [Suspect]
     Active Substance: FENTANYL CITRATE
     Indication: PAIN
     Dosage: ?          OTHER FREQUENCY:UNKNOWN;OTHER ROUTE:IV?
     Route: 042
     Dates: start: 20210818, end: 20210820
  2. FENTANYL [FENTANYL CITRATE] (20MCG/ML/NACL 0.9% INJ,BAG,250ML) [Suspect]
     Active Substance: FENTANYL CITRATE
     Indication: VASCULAR OPERATION
     Dosage: ?          OTHER FREQUENCY:UNKNOWN;OTHER ROUTE:IV?
     Route: 042
     Dates: start: 20210818, end: 20210820

REACTIONS (2)
  - Chills [None]
  - Serotonin syndrome [None]

NARRATIVE: CASE EVENT DATE: 20210820
